FAERS Safety Report 9462136 (Version 1)
Quarter: 2013Q3

REPORT INFORMATION
  Report Type: Spontaneous
  Country: US (occurrence: None)
  Receive Date: 20130815
  Receipt Date: 20130815
  Transmission Date: 20140515
  Serious: Yes (Hospitalization)
  Sender: FDA-Public Use
  Company Number: None

PATIENT
  Sex: Female
  Weight: 82.7 kg

DRUGS (7)
  1. RISPERDAL [Suspect]
     Indication: DEMENTIA
     Dosage: 0.2 MG PO QHS??CHRONIC WITH RECENT INCREASE
  2. TYLENOL [Concomitant]
  3. CALTRATE [Concomitant]
  4. VIT D [Concomitant]
  5. MVI [Concomitant]
  6. PRAVACHOL [Concomitant]
  7. HUMALOG [Concomitant]

REACTIONS (3)
  - Mental status changes [None]
  - Sedation [None]
  - Depressed level of consciousness [None]
